FAERS Safety Report 9314148 (Version 4)
Quarter: 2017Q1

REPORT INFORMATION
  Report Type: Spontaneous
  Country: US (occurrence: US)
  Receive Date: 20130529
  Receipt Date: 20170116
  Transmission Date: 20170429
  Serious: No
  Sender: FDA-Public Use
  Company Number: US-009507513-1305USA006816

PATIENT
  Age: 67 Year
  Sex: Male
  Weight: 75.28 kg

DRUGS (7)
  1. AMARYL [Concomitant]
     Active Substance: GLIMEPIRIDE
     Indication: BLOOD GLUCOSE INCREASED
     Dosage: UNK
  2. METFORMIN [Suspect]
     Active Substance: METFORMIN HYDROCHLORIDE
     Dosage: UNK
  3. ASMANEX [Suspect]
     Active Substance: MOMETASONE FUROATE
     Dosage: 220 MCG/ 2 PUFFS TWICE A DAY
     Route: 055
     Dates: start: 201206
  4. KLONOPIN [Concomitant]
     Active Substance: CLONAZEPAM
  5. FOSAMAX [Concomitant]
     Active Substance: ALENDRONATE SODIUM
     Route: 048
  6. SEROQUEL [Concomitant]
     Active Substance: QUETIAPINE FUMARATE
  7. LUVOX [Concomitant]
     Active Substance: FLUVOXAMINE MALEATE

REACTIONS (15)
  - Cough [Not Recovered/Not Resolved]
  - Product closure removal difficult [Unknown]
  - Dyspepsia [Not Recovered/Not Resolved]
  - Blood glucose increased [Unknown]
  - Vomiting [Unknown]
  - Pain [Unknown]
  - Pollakiuria [Not Recovered/Not Resolved]
  - Insomnia [Unknown]
  - Malaise [Unknown]
  - Eructation [Not Recovered/Not Resolved]
  - Retching [Unknown]
  - Diarrhoea [Unknown]
  - Exposure to violent event [Unknown]
  - Product label issue [Unknown]
  - Product quality issue [Unknown]

NARRATIVE: CASE EVENT DATE: 201211
